FAERS Safety Report 21915915 (Version 1)
Quarter: 2023Q1

REPORT INFORMATION
  Report Type: Spontaneous
  Country: JP (occurrence: JP)
  Receive Date: 20230126
  Receipt Date: 20230126
  Transmission Date: 20230418
  Serious: Yes (Other)
  Sender: FDA-Public Use
  Company Number: JP-002147023-NVSC2023JP017423

PATIENT

DRUGS (2)
  1. LIDOCAINE [Suspect]
     Active Substance: LIDOCAINE
     Indication: Pleurodesis
     Dosage: 10 ML (INJECTED THROUGH A CHEST TUBE)
     Route: 065
  2. DEXTROSE [Suspect]
     Active Substance: DEXTROSE
     Indication: Pleurodesis
     Dosage: 50 ML
     Route: 065

REACTIONS (2)
  - Pleural effusion [Unknown]
  - Off label use [Unknown]
